FAERS Safety Report 7170736-0 (Version None)
Quarter: 2010Q4

REPORT INFORMATION
  Report Type: 
  Country: None (occurrence: None)
  Receive Date: 20101206
  Receipt Date: 20101006
  Transmission Date: 20110411
  Serious: Yes (Other)
  Sender: FDA-Public Use
  Company Number: 2010-01005

PATIENT
  Sex: Female

DRUGS (1)
  1. ZICAM COLD REMEDY RAPIDMELT WITH VITAMIN C [Suspect]

REACTIONS (2)
  - AGEUSIA [None]
  - VIITH NERVE PARALYSIS [None]
